FAERS Safety Report 9300626 (Version 2)
Quarter: 2013Q3

REPORT INFORMATION
  Report Type: Spontaneous
  Country: JP (occurrence: JP)
  Receive Date: 20130521
  Receipt Date: 20130805
  Transmission Date: 20140515
  Serious: Yes (Hospitalization)
  Sender: FDA-Public Use
  Company Number: JP-SANOFI-AVENTIS-2013SA050968

PATIENT
  Age: 56 Year
  Sex: Female
  Weight: 44 kg

DRUGS (71)
  1. ELPLAT [Suspect]
     Indication: COLON CANCER
     Dosage: INFUSION SOLUTION
     Route: 041
     Dates: start: 20110318, end: 20110318
  2. ELPLAT [Suspect]
     Indication: COLON CANCER
     Dosage: INFUSION SOLUTION
     Route: 041
     Dates: start: 20110401, end: 20110401
  3. ELPLAT [Suspect]
     Indication: COLON CANCER
     Dosage: INFUSION SOLUTION
     Route: 041
     Dates: start: 20110817, end: 20110817
  4. ELPLAT [Suspect]
     Indication: COLON CANCER
     Dosage: INFUSION SOLUTION
     Route: 041
     Dates: start: 20111119, end: 20111119
  5. ELPLAT [Suspect]
     Indication: COLON CANCER
     Dosage: INFUSION SOLUTION
     Route: 041
     Dates: start: 20110420, end: 20110420
  6. ELPLAT [Suspect]
     Indication: COLON CANCER
     Dosage: INFUSION SOLUTION
     Route: 041
     Dates: start: 20130220, end: 20130220
  7. ELPLAT [Suspect]
     Indication: COLON CANCER
     Dosage: INFUSION SOLUTION
     Route: 041
     Dates: start: 20110511, end: 20110511
  8. ELPLAT [Suspect]
     Indication: COLON CANCER
     Dosage: INFUSION SOLUTION
     Route: 041
     Dates: start: 20130305, end: 20130305
  9. ELPLAT [Suspect]
     Indication: COLON CANCER
     Dosage: INFUSION SOLUTION
     Route: 041
     Dates: start: 20110525, end: 20110525
  10. ELPLAT [Suspect]
     Indication: COLON CANCER
     Dosage: INFUSION SOLUTION
     Route: 041
     Dates: start: 20130330, end: 20130330
  11. ELPLAT [Suspect]
     Indication: COLON CANCER
     Dosage: INFUSION SOLUTION
     Route: 041
     Dates: start: 20110608, end: 20110608
  12. ELPLAT [Suspect]
     Indication: COLON CANCER
     Dosage: INFUSION SOLUTION
     Route: 041
     Dates: start: 20110622, end: 20110622
  13. ELPLAT [Suspect]
     Indication: COLON CANCER
     Dosage: INFUSION SOLUTION
     Route: 041
     Dates: start: 20110706, end: 20110706
  14. ELPLAT [Suspect]
     Indication: COLON CANCER
     Dosage: INFUSION SOLUTION
     Route: 041
     Dates: start: 20110720, end: 20110720
  15. ELPLAT [Suspect]
     Indication: COLON CANCER
     Dosage: INFUSION SOLUTION
     Route: 041
     Dates: start: 20110803, end: 20110803
  16. ELPLAT [Suspect]
     Indication: COLON CANCER
     Dosage: INFUSION SOLUTION
     Route: 041
     Dates: start: 20110831, end: 20110831
  17. ELPLAT [Suspect]
     Indication: COLON CANCER
     Dosage: INFUSION SOLUTION
     Route: 041
     Dates: start: 20110914, end: 20110914
  18. ELPLAT [Suspect]
     Indication: COLON CANCER
     Dosage: INFUSION SOLUTION
     Route: 041
     Dates: start: 20111012, end: 20111012
  19. ELPLAT [Suspect]
     Indication: COLON CANCER
     Dosage: INFUSION SOLUTION
     Route: 041
     Dates: start: 20111026, end: 20111026
  20. FLUOROURACIL [Suspect]
     Indication: COLON CANCER
     Route: 040
     Dates: start: 20110318, end: 20110318
  21. FLUOROURACIL [Suspect]
     Indication: COLON CANCER
     Route: 041
     Dates: start: 20110401, end: 20110401
  22. FLUOROURACIL [Suspect]
     Indication: COLON CANCER
     Route: 041
     Dates: start: 20110511, end: 20110511
  23. FLUOROURACIL [Suspect]
     Indication: COLON CANCER
     Route: 041
     Dates: start: 20110525, end: 20110525
  24. FLUOROURACIL [Suspect]
     Indication: COLON CANCER
     Route: 041
     Dates: start: 20110318, end: 20110318
  25. FLUOROURACIL [Suspect]
     Indication: COLON CANCER
     Route: 040
     Dates: start: 20110420, end: 20110420
  26. FLUOROURACIL [Suspect]
     Indication: COLON CANCER
     Route: 041
     Dates: start: 20110608, end: 20110608
  27. FLUOROURACIL [Suspect]
     Indication: COLON CANCER
     Route: 041
     Dates: start: 20120222, end: 20120222
  28. FLUOROURACIL [Suspect]
     Indication: COLON CANCER
     Route: 040
     Dates: start: 20110401, end: 20110401
  29. FLUOROURACIL [Suspect]
     Indication: COLON CANCER
     Route: 041
     Dates: start: 20110420, end: 20110420
  30. FLUOROURACIL [Suspect]
     Indication: COLON CANCER
     Route: 041
     Dates: start: 20110622, end: 20110622
  31. FLUOROURACIL [Suspect]
     Indication: COLON CANCER
     Route: 040
     Dates: start: 20110511, end: 20110511
  32. FLUOROURACIL [Suspect]
     Indication: COLON CANCER
     Route: 041
     Dates: start: 20110706, end: 20110706
  33. FLUOROURACIL [Suspect]
     Indication: COLON CANCER
     Route: 041
     Dates: start: 20110720, end: 20110720
  34. FLUOROURACIL [Suspect]
     Indication: COLON CANCER
     Route: 041
     Dates: start: 20110803, end: 20110803
  35. FLUOROURACIL [Suspect]
     Indication: COLON CANCER
     Route: 041
     Dates: start: 20110817, end: 20110817
  36. FLUOROURACIL [Suspect]
     Indication: COLON CANCER
     Route: 041
     Dates: start: 20110831, end: 20110831
  37. FLUOROURACIL [Suspect]
     Indication: COLON CANCER
     Route: 041
     Dates: start: 20110914, end: 20110914
  38. FLUOROURACIL [Suspect]
     Indication: COLON CANCER
     Route: 041
     Dates: start: 20111012, end: 20111012
  39. FLUOROURACIL [Suspect]
     Indication: COLON CANCER
     Route: 041
     Dates: start: 20111026, end: 20111026
  40. FLUOROURACIL [Suspect]
     Indication: COLON CANCER
     Route: 041
     Dates: start: 20111119, end: 20111119
  41. FLUOROURACIL [Suspect]
     Indication: COLON CANCER
     Route: 041
     Dates: start: 20111130, end: 20111130
  42. FLUOROURACIL [Suspect]
     Indication: COLON CANCER
     Route: 041
     Dates: start: 20111214, end: 20111214
  43. FLUOROURACIL [Suspect]
     Indication: COLON CANCER
     Route: 041
     Dates: start: 20111228, end: 20111228
  44. FLUOROURACIL [Suspect]
     Indication: COLON CANCER
     Route: 041
     Dates: start: 20120111, end: 20120111
  45. FLUOROURACIL [Suspect]
     Indication: COLON CANCER
     Route: 041
     Dates: start: 20120125, end: 20120125
  46. FLUOROURACIL [Suspect]
     Indication: COLON CANCER
     Route: 041
     Dates: start: 20120208, end: 20120208
  47. FLUOROURACIL [Suspect]
     Indication: COLON CANCER
     Route: 041
     Dates: start: 20120308, end: 20120308
  48. FLUOROURACIL [Suspect]
     Indication: COLON CANCER
     Route: 041
     Dates: start: 20120517, end: 20120517
  49. FLUOROURACIL [Suspect]
     Indication: COLON CANCER
     Route: 041
     Dates: start: 20120531, end: 20120531
  50. FLUOROURACIL [Suspect]
     Indication: COLON CANCER
     Route: 041
     Dates: start: 20120705, end: 20120705
  51. FLUOROURACIL [Suspect]
     Indication: COLON CANCER
     Route: 041
     Dates: start: 20120719, end: 20120719
  52. FLUOROURACIL [Suspect]
     Indication: COLON CANCER
     Route: 041
     Dates: start: 20120802, end: 20120802
  53. FLUOROURACIL [Suspect]
     Indication: COLON CANCER
     Route: 041
     Dates: start: 20120816, end: 20120816
  54. FLUOROURACIL [Suspect]
     Indication: COLON CANCER
     Route: 041
     Dates: start: 20120830, end: 20120830
  55. FLUOROURACIL [Suspect]
     Indication: COLON CANCER
     Route: 041
     Dates: start: 20120913, end: 20120913
  56. FLUOROURACIL [Suspect]
     Indication: COLON CANCER
     Route: 041
     Dates: start: 20120927, end: 20120927
  57. FLUOROURACIL [Suspect]
     Indication: COLON CANCER
     Route: 041
     Dates: start: 20121011, end: 20121011
  58. FLUOROURACIL [Suspect]
     Indication: COLON CANCER
     Route: 041
     Dates: start: 20121025, end: 20121025
  59. FLUOROURACIL [Suspect]
     Indication: COLON CANCER
     Route: 041
     Dates: start: 20121108, end: 20121108
  60. FLUOROURACIL [Suspect]
     Indication: COLON CANCER
     Route: 041
     Dates: start: 20121122, end: 20121122
  61. FLUOROURACIL [Suspect]
     Indication: COLON CANCER
     Route: 041
     Dates: start: 20121206, end: 20121206
  62. FLUOROURACIL [Suspect]
     Indication: COLON CANCER
     Route: 041
     Dates: start: 20121220, end: 20121220
  63. FLUOROURACIL [Suspect]
     Indication: COLON CANCER
     Route: 041
     Dates: start: 20130106, end: 20130106
  64. FLUOROURACIL [Suspect]
     Indication: COLON CANCER
     Route: 041
     Dates: start: 20130120, end: 20130120
  65. FLUOROURACIL [Suspect]
     Indication: COLON CANCER
     Route: 041
     Dates: start: 20130203, end: 20130203
  66. FLUOROURACIL [Suspect]
     Indication: COLON CANCER
     Route: 041
     Dates: start: 20130220, end: 20130220
  67. FLUOROURACIL [Suspect]
     Indication: COLON CANCER
     Route: 041
     Dates: start: 20130305, end: 20130305
  68. FLUOROURACIL [Suspect]
     Indication: COLON CANCER
     Route: 041
     Dates: start: 20130330, end: 20130330
  69. CALCIUM LEVOFOLINATE [Concomitant]
     Indication: COLON CANCER
     Dates: start: 20110318, end: 20130330
  70. GRANISETRON HYDROCHLORIDE [Concomitant]
     Dates: start: 20110318, end: 20130330
  71. DEXAMETHASONE SODIUM PHOSPHATE [Concomitant]
     Dates: start: 20110318, end: 20130330

REACTIONS (4)
  - Varices oesophageal [Recovered/Resolved]
  - Neuropathy peripheral [Unknown]
  - White blood cell count decreased [Unknown]
  - Neutrophil count decreased [Unknown]
